FAERS Safety Report 15504923 (Version 1)
Quarter: 2018Q4

REPORT INFORMATION
  Report Type: Spontaneous
  Country: US (occurrence: US)
  Receive Date: 20181009
  Receipt Date: 20181009
  Transmission Date: 20190205
  Serious: Yes (Other)
  Sender: FDA-Public Use
  Company Number: None

PATIENT
  Age: 58 Year
  Sex: Female
  Weight: 76.5 kg

DRUGS (9)
  1. PLAQUENIL [Suspect]
     Active Substance: HYDROXYCHLOROQUINE SULFATE
     Indication: RHEUMATOID ARTHRITIS
     Dosage: ?          QUANTITY:1 TABLET(S);?
     Route: 048
     Dates: start: 20170927, end: 20171014
  2. FOLIC ACID. [Concomitant]
     Active Substance: FOLIC ACID
  3. BENICAR [Concomitant]
     Active Substance: OLMESARTAN MEDOXOMIL
  4. MULTIVITAMIN [Concomitant]
     Active Substance: VITAMINS
  5. BUSPAR [Concomitant]
     Active Substance: BUSPIRONE HYDROCHLORIDE
  6. VITAMIN E [Concomitant]
     Active Substance: .ALPHA.-TOCOPHEROL
  7. TUMERIC [Concomitant]
     Active Substance: HERBALS\TURMERIC
  8. METHOTREXATE. [Concomitant]
     Active Substance: METHOTREXATE
  9. FISH OIL [Concomitant]
     Active Substance: FISH OIL

REACTIONS (8)
  - Dry eye [None]
  - Alopecia [None]
  - Stevens-Johnson syndrome [None]
  - Blister [None]
  - Rash [None]
  - Skin exfoliation [None]
  - Paraesthesia oral [None]
  - Nail disorder [None]

NARRATIVE: CASE EVENT DATE: 20171014
